FAERS Safety Report 11083055 (Version 1)
Quarter: 2015Q2

REPORT INFORMATION
  Report Type: Spontaneous
  Country: US (occurrence: US)
  Receive Date: 20150501
  Receipt Date: 20150501
  Transmission Date: 20150821
  Serious: Yes (Hospitalization, Other)
  Sender: FDA-Public Use
  Company Number: US-ABBVIE-14P-163-1312884-00

PATIENT
  Sex: Male

DRUGS (1)
  1. ANDROGEL [Suspect]
     Active Substance: TESTOSTERONE
     Indication: BLOOD TESTOSTERONE DECREASED
     Route: 061
     Dates: start: 20120929, end: 201211

REACTIONS (10)
  - Emotional distress [Unknown]
  - Fear [Unknown]
  - Deep vein thrombosis [Unknown]
  - Pulmonary embolism [Unknown]
  - Anhedonia [Unknown]
  - Social problem [Unknown]
  - Economic problem [Unknown]
  - Impaired work ability [Unknown]
  - Embolism venous [Unknown]
  - Pain [Unknown]

NARRATIVE: CASE EVENT DATE: 201211
